FAERS Safety Report 21034869 (Version 2)
Quarter: 2023Q2

REPORT INFORMATION
  Report Type: Report from Study
  Country: US (occurrence: US)
  Receive Date: 20220701
  Receipt Date: 20230518
  Transmission Date: 20230722
  Serious: Yes (Hospitalization)
  Sender: FDA-Public Use
  Company Number: US-GLAXOSMITHKLINE-US2022097821

PATIENT

DRUGS (3)
  1. NIRAPARIB [Suspect]
     Active Substance: NIRAPARIB
     Indication: Metastases to retroperitoneum
     Dosage: 200 MG, QD
     Route: 048
     Dates: start: 20220512
  2. NIRAPARIB [Suspect]
     Active Substance: NIRAPARIB
     Indication: Metastases to peritoneum
     Dosage: 200 MG, QD
     Route: 048
     Dates: start: 20220621
  3. NIRAPARIB [Suspect]
     Active Substance: NIRAPARIB
     Dosage: 200 MG, QD
     Route: 048
     Dates: start: 20220621

REACTIONS (3)
  - Hospitalisation [Unknown]
  - Vomiting [Not Recovered/Not Resolved]
  - Off label use [Unknown]
